FAERS Safety Report 11545826 (Version 1)
Quarter: 2015Q3

REPORT INFORMATION
  Report Type: Spontaneous
  Country: FR (occurrence: FR)
  Receive Date: 20150924
  Receipt Date: 20150924
  Transmission Date: 20151125
  Serious: Yes (Life-Threatening, Other)
  Sender: FDA-Public Use
  Company Number: FR-GLAXOSMITHKLINE-FR2015GSK134072

PATIENT
  Age: 41 Year
  Sex: Female

DRUGS (5)
  1. TAXOL [Suspect]
     Active Substance: PACLITAXEL
     Dosage: 1 UNK, UNK
     Route: 042
     Dates: start: 20150113
  2. TAXOL [Suspect]
     Active Substance: PACLITAXEL
     Dosage: UNK
     Route: 042
     Dates: start: 20150120, end: 20150120
  3. CARBOPLATIN. [Concomitant]
     Active Substance: CARBOPLATIN
     Indication: THYROID CANCER
     Dosage: UNK
     Dates: start: 2014
  4. ZOPHREN [Suspect]
     Active Substance: ONDANSETRON
     Indication: PRODUCT USED FOR UNKNOWN INDICATION
     Dosage: UNK
     Route: 042
     Dates: start: 2014
  5. TAXOL [Suspect]
     Active Substance: PACLITAXEL
     Indication: THYROID CANCER
     Dosage: UNK
     Route: 042
     Dates: start: 2014

REACTIONS (3)
  - Abdominal pain [Recovered/Resolved]
  - Hypotension [Recovered/Resolved]
  - Anaphylactic shock [Recovered/Resolved]

NARRATIVE: CASE EVENT DATE: 20150120
